FAERS Safety Report 17231022 (Version 1)
Quarter: 2020Q1

REPORT INFORMATION
  Report Type: Spontaneous
  Country: TR (occurrence: TR)
  Receive Date: 20200103
  Receipt Date: 20200103
  Transmission Date: 20200409
  Serious: Yes (Death, Hospitalization, Other)
  Sender: FDA-Public Use
  Company Number: NVSC2019TR084641

PATIENT
  Age: 12 Year
  Sex: Male

DRUGS (5)
  1. FUROSEMIDE. [Suspect]
     Active Substance: FUROSEMIDE
     Indication: BURKITT^S LYMPHOMA
     Dosage: UNK
     Route: 065
  2. ALLOPURINOL. [Suspect]
     Active Substance: ALLOPURINOL
     Indication: BURKITT^S LYMPHOMA
     Dosage: UNK
     Route: 048
  3. CYCLOPHOSPHAMIDE. [Suspect]
     Active Substance: CYCLOPHOSPHAMIDE
     Indication: BURKITT^S LYMPHOMA
     Dosage: UNK
     Route: 042
  4. PREDNISOLONE. [Suspect]
     Active Substance: PREDNISOLONE
     Indication: BURKITT^S LYMPHOMA
     Dosage: UNK
     Route: 065
  5. CAPTOPRIL. [Suspect]
     Active Substance: CAPTOPRIL
     Indication: BURKITT^S LYMPHOMA
     Dosage: UNK
     Route: 065

REACTIONS (15)
  - Febrile neutropenia [Unknown]
  - Posterior reversible encephalopathy syndrome [Unknown]
  - Hyperreflexia [Unknown]
  - Generalised tonic-clonic seizure [Unknown]
  - Binocular eye movement disorder [Unknown]
  - Sepsis [Fatal]
  - Pulmonary haemorrhage [Fatal]
  - Tumour lysis syndrome [Unknown]
  - Product use in unapproved indication [Unknown]
  - Anuria [Fatal]
  - Abdominal distension [Unknown]
  - Clonus [Unknown]
  - Seizure [Unknown]
  - Hypertension [Unknown]
  - Renal failure [Fatal]
